FAERS Safety Report 9135719 (Version 1)
Quarter: 2013Q1

REPORT INFORMATION
  Report Type: Spontaneous
  Country: US (occurrence: None)
  Receive Date: 20130227
  Receipt Date: 20130227
  Transmission Date: 20140127
  Serious: Yes (Death)
  Sender: FDA-Public Use
  Company Number: AUR-APL-2013-00640

PATIENT
  Age: 49 Year
  Sex: Male

DRUGS (5)
  1. ALPRAZOLAM (ALPRAZOLAM) [Suspect]
     Indication: PRODUCT USED FOR UNKNOWN INDICATION
     Route: 048
  2. CITALOPRAM (CITALOPRAM) [Suspect]
  3. CYCLOBENZAPRINE [Suspect]
  4. ZOLPIDEM (ZOLPIDEM) [Suspect]
  5. TRAMADOL (TRAMADOL) [Suspect]

REACTIONS (1)
  - Completed suicide [None]
